FAERS Safety Report 12069724 (Version 2)
Quarter: 2016Q1

REPORT INFORMATION
  Report Type: Spontaneous
  Country: US (occurrence: US)
  Receive Date: 20160211
  Receipt Date: 20160216
  Transmission Date: 20160526
  Serious: No
  Sender: FDA-Public Use
  Company Number: US-PFIZER INC-2016085123

PATIENT
  Age: 74 Year
  Sex: Male
  Weight: 88.45 kg

DRUGS (3)
  1. WARFARIN [Concomitant]
     Active Substance: WARFARIN
     Indication: DEEP VEIN THROMBOSIS
     Dosage: 4 MG, ALTERNATE DAY, (4 MG ON MONDAYS, WEDNESDAYS, FRIDAYS)
  2. VIAGRA [Suspect]
     Active Substance: SILDENAFIL CITRATE
     Indication: ERECTILE DYSFUNCTION
     Dosage: WEEKLY, (50 MG TABLET (CUTTING 100 MG ) ORALLY ONCE A WEEK)
     Route: 048
     Dates: end: 20160202
  3. WARFARIN [Concomitant]
     Active Substance: WARFARIN
     Dosage: 5 MG, ALTERNATE DAY, (5 MG ON OTHER DAYS)

REACTIONS (3)
  - Expired product administered [Not Recovered/Not Resolved]
  - Drug effect incomplete [Not Recovered/Not Resolved]
  - Drug ineffective [Not Recovered/Not Resolved]
